FAERS Safety Report 5688374-5 (Version None)
Quarter: 2008Q1

REPORT INFORMATION
  Report Type: 
  Country: None (occurrence: None)
  Receive Date: 20080331
  Receipt Date: 20080320
  Transmission Date: 20080703
  Serious: Yes (Other)
  Sender: FDA-Public Use
  Company Number: NL-JNJFOC-20080305133

PATIENT
  Sex: Male
  Weight: 3.5 kg

DRUGS (6)
  1. REMICADE [Suspect]
  2. REMICADE [Suspect]
  3. REMICADE [Suspect]
     Indication: DRUG EXPOSURE DURING PREGNANCY
  4. AZATHIOPRINE [Concomitant]
  5. VITAMIN B-12 [Concomitant]
  6. VALACYCLOVIR [Concomitant]

REACTIONS (1)
  - PREMATURE BABY [None]
